FAERS Safety Report 15057282 (Version 11)
Quarter: 2022Q4

REPORT INFORMATION
  Report Type: Report from Study
  Country: ES (occurrence: ES)
  Receive Date: 20180624
  Receipt Date: 20221204
  Transmission Date: 20230113
  Serious: Yes (Death, Hospitalization)
  Sender: FDA-Public Use
  Company Number: ES-BOEHRINGERINGELHEIM-2018-BI-032412

PATIENT
  Age: 43 Year
  Sex: Male

DRUGS (3)
  1. DABIGATRAN [Suspect]
     Active Substance: DABIGATRAN
     Indication: Anticoagulant therapy
     Route: 048
     Dates: start: 20170823
  2. DABIGATRAN [Suspect]
     Active Substance: DABIGATRAN
     Indication: Atrial flutter
  3. DABIGATRAN [Suspect]
     Active Substance: DABIGATRAN
     Indication: Atrial fibrillation

REACTIONS (4)
  - Complications of transplanted heart [Fatal]
  - Pericardial haemorrhage [Unknown]
  - Procedural complication [Unknown]
  - Heart transplant [Recovered/Resolved]

NARRATIVE: CASE EVENT DATE: 20170823
